FAERS Safety Report 23930401 (Version 1)
Quarter: 2024Q2

REPORT INFORMATION
  Report Type: Report from Study
  Country: US (occurrence: US)
  Receive Date: 20240602
  Receipt Date: 20240602
  Transmission Date: 20240715
  Serious: Yes (Other)
  Sender: FDA-Public Use
  Company Number: US-ABBVIE-5774183

PATIENT
  Age: 25 Year
  Sex: Male
  Weight: 68 kg

DRUGS (4)
  1. RINVOQ [Suspect]
     Active Substance: UPADACITINIB
     Indication: Ankylosing spondylitis
     Dosage: FORM STRENGTH: 15MG
     Route: 048
     Dates: start: 202401, end: 202405
  2. HYDROCODONE [Concomitant]
     Active Substance: HYDROCODONE
     Indication: Arthralgia
  3. PREDNISONE [Concomitant]
     Active Substance: PREDNISONE
     Indication: Joint swelling
  4. IBUPROFEN [Concomitant]
     Active Substance: IBUPROFEN
     Indication: Joint swelling

REACTIONS (3)
  - Joint swelling [Recovered/Resolved]
  - Liver disorder [Not Recovered/Not Resolved]
  - Joint swelling [Not Recovered/Not Resolved]

NARRATIVE: CASE EVENT DATE: 20240423
